FAERS Safety Report 15987471 (Version 2)
Quarter: 2019Q1

REPORT INFORMATION
  Report Type: Spontaneous
  Country: US (occurrence: US)
  Receive Date: 20190220
  Receipt Date: 20190227
  Transmission Date: 20190418
  Serious: Yes (Death, Other)
  Sender: FDA-Public Use
  Company Number: PHEH2019US007882

PATIENT
  Age: 60 Year
  Sex: Male

DRUGS (2)
  1. GLEEVEC [Suspect]
     Active Substance: IMATINIB MESYLATE
     Indication: CHRONIC MYELOID LEUKAEMIA
     Dosage: UNK UNK, QD
     Route: 048
     Dates: start: 20080124
  2. TASIGNA [Suspect]
     Active Substance: NILOTINIB
     Indication: PRODUCT USED FOR UNKNOWN INDICATION
     Dosage: UNK UNK, BID
     Route: 065

REACTIONS (18)
  - Acute kidney injury [Unknown]
  - Left ventricular hypertrophy [Unknown]
  - Metabolic acidosis [Unknown]
  - Coronary artery disease [Unknown]
  - Death [Fatal]
  - Atelectasis [Unknown]
  - Chest pain [Unknown]
  - Hypokalaemia [Unknown]
  - Left ventricular dysfunction [Unknown]
  - Left ventricular dilatation [Unknown]
  - Left atrial dilatation [Unknown]
  - Mitral valve incompetence [Unknown]
  - Right ventricular systolic pressure decreased [Unknown]
  - Tricuspid valve incompetence [Unknown]
  - Pancytopenia [Unknown]
  - Thrombocytopenia [Unknown]
  - Supraventricular tachycardia [Unknown]
  - Anaemia [Unknown]

NARRATIVE: CASE EVENT DATE: 20090324
